FAERS Safety Report 17883851 (Version 6)
Quarter: 2021Q3

REPORT INFORMATION
  Report Type: Spontaneous
  Country: US (occurrence: US)
  Receive Date: 20200611
  Receipt Date: 20210729
  Transmission Date: 20211014
  Serious: No
  Sender: FDA-Public Use
  Company Number: US-GLAXOSMITHKLINE-US2020AMR096560

PATIENT
  Sex: Female

DRUGS (4)
  1. ZEJULA [Suspect]
     Active Substance: NIRAPARIB
     Dosage: 100 MG, QD
  2. ZEJULA [Suspect]
     Active Substance: NIRAPARIB
     Dosage: 100 MG, QD (DAILY ALTERNATING 2 CAPSULES EVERY OTHER DAY)
     Route: 048
  3. ZEJULA [Suspect]
     Active Substance: NIRAPARIB
     Indication: OVARIAN CANCER
     Dosage: 200 MG, QD (100 MG X 2 DAI)
     Route: 048
     Dates: start: 20200608
  4. ZEJULA [Suspect]
     Active Substance: NIRAPARIB
     Dosage: 200 MG

REACTIONS (9)
  - Surgery [Unknown]
  - Oral discomfort [Unknown]
  - Positron emission tomogram abnormal [Unknown]
  - Underdose [Unknown]
  - Blood test abnormal [Unknown]
  - Product dose omission issue [Unknown]
  - Product use issue [Unknown]
  - Stomatitis [Unknown]
  - Swollen tongue [Unknown]
